FAERS Safety Report 21677545 (Version 1)
Quarter: 2022Q4

REPORT INFORMATION
  Report Type: Spontaneous
  Country: JP (occurrence: JP)
  Receive Date: 20221203
  Receipt Date: 20221203
  Transmission Date: 20230113
  Serious: Yes (Other)
  Sender: FDA-Public Use
  Company Number: JP-TAKEDA-2022TJP078010

PATIENT
  Age: 48 Year
  Sex: Female

DRUGS (1)
  1. LEUPLIN [Suspect]
     Active Substance: LEUPROLIDE ACETATE
     Indication: Endometriosis
     Dosage: INJECTION 3.75 MG
     Route: 065
     Dates: start: 20221025

REACTIONS (5)
  - Haemorrhage [Unknown]
  - Headache [Unknown]
  - Hyperglobulinaemia [Unknown]
  - Abdominal pain [Unknown]
  - Ocular hyperaemia [Not Recovered/Not Resolved]

NARRATIVE: CASE EVENT DATE: 20221119
